FAERS Safety Report 18946333 (Version 3)
Quarter: 2021Q1

REPORT INFORMATION
  Report Type: Spontaneous
  Country: US (occurrence: US)
  Receive Date: 20210226
  Receipt Date: 20210316
  Transmission Date: 20210420
  Serious: Yes (Death, Other)
  Sender: FDA-Public Use
  Company Number: US-PFIZER INC-2021155995

PATIENT
  Age: 81 Year
  Sex: Male

DRUGS (4)
  1. INLYTA [Suspect]
     Active Substance: AXITINIB
     Dosage: 5 MG
     Dates: start: 20201109
  2. INLYTA [Suspect]
     Active Substance: AXITINIB
     Dosage: 5 MG
     Dates: start: 20210214
  3. INLYTA [Suspect]
     Active Substance: AXITINIB
     Dosage: 5 MG
     Dates: start: 20201110
  4. INLYTA [Suspect]
     Active Substance: AXITINIB
     Dosage: 5 MG
     Dates: start: 20201222

REACTIONS (9)
  - Oral pruritus [Unknown]
  - Stomatitis [Unknown]
  - Pruritus [Unknown]
  - Dysphonia [Unknown]
  - Headache [Unknown]
  - Death [Fatal]
  - Gingival bleeding [Unknown]
  - Blood pressure increased [Unknown]
  - Wrist fracture [Unknown]

NARRATIVE: CASE EVENT DATE: 202012
